FAERS Safety Report 20282388 (Version 1)
Quarter: 2022Q1

REPORT INFORMATION
  Report Type: Spontaneous
  Country: US (occurrence: None)
  Receive Date: 20220101
  Receipt Date: 20220101
  Transmission Date: 20220423
  Serious: Yes (Hospitalization, Other)
  Sender: FDA-Public Use
  Company Number: None

PATIENT
  Age: 75 Year
  Sex: Male
  Weight: 106.59 kg

DRUGS (1)
  1. CIPROFLOXACIN [Suspect]
     Active Substance: CIPROFLOXACIN
     Indication: Diverticulitis
     Dosage: FREQUENCY : TWICE A DAY;?
     Route: 042
     Dates: start: 20210831

REACTIONS (4)
  - Unresponsive to stimuli [None]
  - Cyanosis [None]
  - Generalised tonic-clonic seizure [None]
  - Metastases to central nervous system [None]

NARRATIVE: CASE EVENT DATE: 20210831
